FAERS Safety Report 6397360-1 (Version None)
Quarter: 2009Q4

REPORT INFORMATION
  Report Type: 
  Country: None (occurrence: None)
  Receive Date: 20091012
  Receipt Date: 20090929
  Transmission Date: 20100525
  Serious: Yes (Hospitalization, Other)
  Sender: FDA-Public Use
  Company Number: PHEH2007US14099

PATIENT
  Sex: Male

DRUGS (12)
  1. AREDIA [Suspect]
     Dosage: 9.0 MG, QMO
  2. ZOMETA [Suspect]
  3. FAMVIR                                  /NET/ [Concomitant]
  4. BACTRIM [Concomitant]
  5. DIFLUCAN [Concomitant]
  6. DEXAMETHASONE 0.5MG TAB [Concomitant]
  7. OXYCONTIN [Concomitant]
  8. OXYCODONE [Concomitant]
  9. ATIVAN [Concomitant]
  10. ALLOPURINOL [Concomitant]
  11. ZANTAC [Concomitant]
  12. COUMADIN [Concomitant]

REACTIONS (23)
  - ABDOMINAL DISTENSION [None]
  - ABDOMINAL PAIN [None]
  - ANAEMIA [None]
  - ANXIETY [None]
  - DEEP VEIN THROMBOSIS [None]
  - DEFORMITY [None]
  - DYSPNOEA [None]
  - EMOTIONAL DISTRESS [None]
  - FATIGUE [None]
  - HYPERCHOLESTEROLAEMIA [None]
  - HYPERLIPIDAEMIA [None]
  - INFECTION [None]
  - INJURY [None]
  - NEPHROLITHIASIS [None]
  - NEUROPATHY PERIPHERAL [None]
  - OSTEONECROSIS [None]
  - PAIN [None]
  - PNEUMONIA [None]
  - PROSTATOMEGALY [None]
  - SCIATICA [None]
  - TOOTH EXTRACTION [None]
  - VIRAL UPPER RESPIRATORY TRACT INFECTION [None]
  - WEIGHT DECREASED [None]
